FAERS Safety Report 5761729-6 (Version None)
Quarter: 2008Q2

REPORT INFORMATION
  Report Type: 
  Country: None (occurrence: None)
  Receive Date: 20080606
  Receipt Date: 20080526
  Transmission Date: 20081010
  Serious: Yes (Death, Other)
  Sender: FDA-Public Use
  Company Number: FR-PFIZER INC-2008045289

PATIENT
  Sex: Female

DRUGS (3)
  1. ZYVOX [Suspect]
     Indication: CELLULITIS
  2. AMIKACIN [Suspect]
     Indication: CELLULITIS
  3. DRUG, UNSPECIFIED [Concomitant]

REACTIONS (2)
  - DEATH [None]
  - RENAL FAILURE ACUTE [None]
